FAERS Safety Report 6942005-2 (Version None)
Quarter: 2010Q3

REPORT INFORMATION
  Report Type: 
  Country: None (occurrence: None)
  Receive Date: 20100803
  Receipt Date: 20100719
  Transmission Date: 20110219
  Serious: Yes (Death, Life-Threatening)
  Sender: FDA-Public Use
  Company Number: OMX-2010-00056

PATIENT
  Age: 70 Year
  Sex: Male
  Weight: 83 kg

DRUGS (6)
  1. EVICEL [Suspect]
     Indication: VASCULAR OPERATION
     Dosage: QUANTITY USED '5CC'
  2. HEPARIN [Concomitant]
  3. APPLICATOR [Concomitant]
  4. ROCEPHIN [Concomitant]
  5. PROPOFOL [Concomitant]
  6. PRESSURE REGULATOR [Concomitant]

REACTIONS (6)
  - ATRIOVENTRICULAR BLOCK COMPLETE [None]
  - BRADYCARDIA [None]
  - CARDIO-RESPIRATORY ARREST [None]
  - HYPOTENSION [None]
  - PNEUMONIA [None]
  - PULMONARY HYPERTENSION [None]
